FAERS Safety Report 5408735-9 (Version None)
Quarter: 2007Q3

REPORT INFORMATION
  Report Type: 
  Country: None (occurrence: None)
  Receive Date: 20070808
  Receipt Date: 20070730
  Transmission Date: 20080115
  Serious: Yes (Hospitalization)
  Sender: FDA-Public Use
  Company Number: B0478493A

PATIENT
  Age: 47 Year
  Sex: Female
  Weight: 66 kg

DRUGS (2)
  1. LAPATINIB [Suspect]
     Indication: BREAST CANCER METASTATIC
     Dosage: 1250MG PER DAY
     Route: 048
     Dates: start: 20070216, end: 20070701
  2. CAPECITABINE [Suspect]
     Indication: BREAST CANCER METASTATIC
     Dosage: 2000MG PER DAY
     Route: 048
     Dates: start: 20070216, end: 20070701

REACTIONS (3)
  - ERYSIPELAS [None]
  - RASH [None]
  - SKIN OEDEMA [None]
